FAERS Safety Report 17628631 (Version 1)
Quarter: 2020Q2

REPORT INFORMATION
  Report Type: Spontaneous
  Country: DK (occurrence: DK)
  Receive Date: 20200406
  Receipt Date: 20200406
  Transmission Date: 20200713
  Serious: Yes (Other)
  Sender: FDA-Public Use
  Company Number: DK-TEVA-2020-DK-1218665

PATIENT
  Age: 68 Year
  Sex: Female

DRUGS (8)
  1. PREDNISOLONE. [Concomitant]
     Active Substance: PREDNISOLONE
     Indication: ADVERSE DRUG REACTION
     Dosage: STRENGTH: 25 MG AND 50 MG.
     Route: 048
     Dates: start: 20200210
  2. ATORVASTATIN [Concomitant]
     Active Substance: ATORVASTATIN
     Indication: HYPERCHOLESTEROLAEMIA
     Dosage: 20 MG
     Route: 048
     Dates: start: 20191127
  3. MAGNESIUM HYDROXIDE. [Concomitant]
     Active Substance: MAGNESIUM HYDROXIDE
     Indication: CONSTIPATION
     Dosage: 500 MG
     Route: 048
     Dates: start: 20090426
  4. DIURAL [Concomitant]
     Active Substance: FUROSEMIDE
     Indication: DIURETIC THERAPY
     Dosage: 1 AS NEEDED AT MOST ONCE DAILY
     Route: 048
     Dates: start: 20200210
  5. MOTILIUM [Concomitant]
     Active Substance: DOMPERIDONE
     Indication: ADVERSE DRUG REACTION
     Dosage: DOSAGE: 2 TABLETS AS NEEDED NO MORE THAN 3 TIMES DAILY NB MAX 4 DAYS AFTER TREATMENT
     Route: 048
     Dates: start: 20200210
  6. APREPITANT. [Concomitant]
     Active Substance: APREPITANT
     Indication: ADVERSE DRUG REACTION
     Dosage: STRENGTH:  125 MG + 80 MG, 1 DOSAGE FORM
     Route: 048
     Dates: start: 20200210
  7. CISPLATIN. [Suspect]
     Active Substance: CISPLATIN
     Indication: VAGINAL CANCER
     Dosage: 70 MG ONCE A WEEK
     Route: 042
     Dates: start: 20200210
  8. PALONOSETRON. [Concomitant]
     Active Substance: PALONOSETRON HYDROCHLORIDE
     Indication: ADVERSE DRUG REACTION
     Dosage: 500 MCG
     Route: 048
     Dates: start: 20200210

REACTIONS (2)
  - Rash erythematous [Unknown]
  - Rash [Unknown]

NARRATIVE: CASE EVENT DATE: 20200224
